FAERS Safety Report 5253855-5 (Version None)
Quarter: 2007Q1

REPORT INFORMATION
  Report Type: 
  Country: None (occurrence: None)
  Receive Date: 20070227
  Receipt Date: 20070216
  Transmission Date: 20070707
  Serious: Yes (Other)
  Sender: FDA-Public Use
  Company Number: 236801

PATIENT
  Age: 78 Year
  Sex: Male

DRUGS (5)
  1. LUCENTIS [Suspect]
     Indication: MACULAR DEGENERATION
     Dosage: UNK, SINGLE, INTRAVITREAL
     Dates: start: 20070125
  2. AVALIDE [Concomitant]
  3. OMEPRAZOLE [Concomitant]
  4. FISH OIL VITAMIN (FISH OIL) [Concomitant]
  5. CENTRUM SILVER (MINERALS NOS, MULTIVITAMINS NOS) [Concomitant]

REACTIONS (1)
  - HAEMORRHAGE [None]
